FAERS Safety Report 4516182-7 (Version None)
Quarter: 2004Q4

REPORT INFORMATION
  Report Type: 
  Country: None (occurrence: None)
  Receive Date: 20041130
  Receipt Date: 20041130
  Transmission Date: 20050328
  Serious: Yes (Hospitalization)
  Sender: FDA-Public Use
  Company Number: None

PATIENT
  Age: 51 Year
  Sex: Female
  Weight: 62 kg

DRUGS (1)
  1. DIGOXIN [Suspect]
     Indication: CARDIAC FAILURE CONGESTIVE
     Dosage: 0.25MG DAILY ORAL
     Route: 048
     Dates: start: 20030101, end: 20040928

REACTIONS (3)
  - DYSPNOEA [None]
  - HEART RATE DECREASED [None]
  - THERAPEUTIC AGENT TOXICITY [None]
